FAERS Safety Report 7217088-5 (Version None)
Quarter: 2011Q1

REPORT INFORMATION
  Report Type: 
  Country: None (occurrence: None)
  Receive Date: 20110110
  Receipt Date: 20101229
  Transmission Date: 20110831
  Serious: Yes (Death, Other)
  Sender: FDA-Public Use
  Company Number: IT-SANOFI-AVENTIS-2011SA001230

PATIENT
  Age: 78 Year
  Sex: Female

DRUGS (2)
  1. OFORTA [Suspect]
     Route: 065
  2. CYTOXAN [Suspect]
     Route: 065

REACTIONS (2)
  - DISEASE PROGRESSION [None]
  - AUTOIMMUNE THROMBOCYTOPENIA [None]
